FAERS Safety Report 9160407 (Version 1)
Quarter: 2013Q1

REPORT INFORMATION
  Report Type: Spontaneous
  Country: BE (occurrence: None)
  Receive Date: 20130215
  Receipt Date: 20130215
  Transmission Date: 20140127
  Serious: Yes (Hospitalization)
  Sender: FDA-Public Use
  Company Number: 220461

PATIENT
  Sex: Female
  Weight: 55 kg

DRUGS (3)
  1. PICATO [Suspect]
     Indication: ACTINIC KERATOSIS
     Route: 061
     Dates: start: 20130201, end: 20130202
  2. BACLOFEN (BACLOFEN) (BACLOFEN) [Concomitant]
  3. XANAX (ALPRAZOLAM) [Concomitant]

REACTIONS (7)
  - Application site erythema [None]
  - Application site scab [None]
  - Application site pain [None]
  - Application site pustules [None]
  - Application site discomfort [None]
  - Sleep disorder [None]
  - Application site pain [None]
